FAERS Safety Report 7287174-2 (Version None)
Quarter: 2010Q4

REPORT INFORMATION
  Report Type: 
  Country: None (occurrence: None)
  Receive Date: 20101220
  Receipt Date: 20100826
  Transmission Date: 20110411
  Serious: Yes (Other)
  Sender: FDA-Public Use
  Company Number: A-US2010-39389

PATIENT
  Age: 66 Year
  Sex: Female
  Weight: 75 kg

DRUGS (7)
  1. ZAVESCA [Suspect]
     Indication: GAUCHER'S DISEASE
     Dosage: 100 MG, QID, ORAL
     Route: 048
     Dates: start: 20040601, end: 20100715
  2. FOSAMAX [Concomitant]
  3. LORATADINE [Concomitant]
  4. VITAMIN B12 [Concomitant]
  5. FISH OIL (FISH OIL) [Concomitant]
  6. VITAMIN D [Concomitant]
  7. MULTIVITAMIN [Concomitant]

REACTIONS (1)
  - NEUROPATHY PERIPHERAL [None]
